FAERS Safety Report 14121015 (Version 2)
Quarter: 2018Q4

REPORT INFORMATION
  Report Type: Report from Study
  Country: US (occurrence: US)
  Receive Date: 20171024
  Receipt Date: 20181207
  Transmission Date: 20190204
  Serious: Yes (Other)
  Sender: FDA-Public Use
  Company Number: US-SA-2017SA172459

PATIENT
  Age: 52 Year
  Sex: Female

DRUGS (2)
  1. ALGLUCOSIDASE ALFA [Suspect]
     Active Substance: ALGLUCOSIDASE ALFA
     Dosage: UNK
  2. ALGLUCOSIDASE ALFA [Suspect]
     Active Substance: ALGLUCOSIDASE ALFA
     Indication: GLYCOGEN STORAGE DISEASE TYPE II
     Dosage: 500 MG, QW
     Route: 041
     Dates: start: 20100818, end: 20170905

REACTIONS (4)
  - Joint surgery [Recovering/Resolving]
  - Spinal fracture [Recovering/Resolving]
  - Malaise [Unknown]
  - Fall [Recovering/Resolving]

NARRATIVE: CASE EVENT DATE: 201709
